FAERS Safety Report 6804143-4 (Version None)
Quarter: 2010Q2

REPORT INFORMATION
  Report Type: 
  Country: None (occurrence: None)
  Receive Date: 20100628
  Receipt Date: 20070510
  Transmission Date: 20101027
  Serious: No
  Sender: FDA-Public Use
  Company Number: US-PFIZER INC-2005119361

PATIENT
  Sex: Female

DRUGS (2)
  1. XALATAN [Suspect]
     Indication: ILL-DEFINED DISORDER
  2. XAL-EASE [Suspect]

REACTIONS (3)
  - ASTHMA [None]
  - DEVICE MALFUNCTION [None]
  - DRUG ADMINISTRATION ERROR [None]
